FAERS Safety Report 9214025 (Version 1)
Quarter: 2013Q2

REPORT INFORMATION
  Report Type: Spontaneous
  Country: US (occurrence: US)
  Receive Date: 20130405
  Receipt Date: 20130405
  Transmission Date: 20140414
  Serious: Yes (Hospitalization, Other)
  Sender: FDA-Public Use
  Company Number: US-ABBOTT-13P-163-1070871-00

PATIENT
  Age: 50 Year
  Sex: 0
  Weight: 102.15 kg

DRUGS (3)
  1. VICODIN [Suspect]
     Indication: DIABETIC NEUROPATHY
     Route: 048
     Dates: start: 201302
  2. GABAPENTIN [Suspect]
     Indication: DIABETIC NEUROPATHY
     Route: 048
     Dates: start: 201302
  3. AMITRIPTYLINE [Suspect]
     Indication: PRODUCT USED FOR UNKNOWN INDICATION
     Route: 048
     Dates: start: 201302

REACTIONS (3)
  - Diabetic neuropathy [Not Recovered/Not Resolved]
  - Pain [Not Recovered/Not Resolved]
  - Pain in extremity [Not Recovered/Not Resolved]
